FAERS Safety Report 9063640 (Version 3)
Quarter: 2013Q1

REPORT INFORMATION
  Report Type: Spontaneous
  Country: US (occurrence: US)
  Receive Date: 20130213
  Receipt Date: 20130321
  Transmission Date: 20140127
  Serious: Yes (Death, Other)
  Sender: FDA-Public Use
  Company Number: US-GENZYME-CERZ-1002806

PATIENT
  Age: 0 None
  Sex: Female
  Weight: 6.2 kg

DRUGS (1)
  1. CEREZYME [Suspect]
     Indication: GAUCHER^S DISEASE
     Dosage: 129 U/KG, Q2W
     Route: 042
     Dates: start: 20121005

REACTIONS (3)
  - Convulsion [Unknown]
  - Dyspnoea [Unknown]
  - Gaucher^s disease [Fatal]
